FAERS Safety Report 4463674-5 (Version None)
Quarter: 2004Q3

REPORT INFORMATION
  Report Type: 
  Country: None (occurrence: None)
  Receive Date: 20040929
  Receipt Date: 20040910
  Transmission Date: 20050211
  Serious: Yes (Death)
  Sender: FDA-Public Use
  Company Number: AU_040908034

PATIENT
  Age: 50 Year
  Sex: Female
  Weight: 97 kg

DRUGS (4)
  1. ZYPREXA [Suspect]
     Indication: SCHIZOPHRENIA
     Dosage: 10 MG/1 DAY
     Route: 048
     Dates: start: 20040318, end: 20040402
  2. RISPERIDONE [Concomitant]
  3. MIRTAZAPINE (MIRTRAZAPINE) [Concomitant]
  4. ZOLPIDEM TARTRATE [Concomitant]

REACTIONS (2)
  - DRUG TOXICITY [None]
  - HEPATIC STEATOSIS [None]
